FAERS Safety Report 6677947-9 (Version None)
Quarter: 2010Q2

REPORT INFORMATION
  Report Type: 
  Country: None (occurrence: None)
  Receive Date: 20100412
  Receipt Date: 20100330
  Transmission Date: 20101027
  Serious: Yes (Hospitalization)
  Sender: FDA-Public Use
  Company Number: ES-ELI_LILLY_AND_COMPANY-ES201003008531

PATIENT
  Sex: Female
  Weight: 75 kg

DRUGS (8)
  1. FORTEO [Suspect]
     Indication: OSTEOPOROSIS
     Dosage: 20 UG, DAILY (1/D)
     Route: 058
     Dates: start: 20090417
  2. SEGURIL [Concomitant]
     Indication: HYPERTENSION
     Dosage: 1/2C
     Route: 048
  3. AMLODIPINE [Concomitant]
     Indication: HYPERTENSION
     Dosage: 10 MG, 1C
     Route: 048
  4. LORAZEPAM [Concomitant]
     Indication: ANXIETY
     Dosage: 1 C, UNK
     Route: 048
  5. ACTONEL [Concomitant]
     Indication: OSTEOPOROSIS
     Dosage: 75 MG, 2/C
     Route: 047
  6. PANTOPRAZOL [Concomitant]
     Dosage: 1 C, UNK
     Route: 048
  7. PARACETAMOL [Concomitant]
     Indication: PAIN
     Dosage: UNK, AS NEEDED
     Route: 048
  8. NOLOTIL [Concomitant]
     Indication: PAIN
     Dosage: UNK, UNKNOWN
     Route: 048

REACTIONS (4)
  - AORTIC ANEURYSM [None]
  - DIZZINESS [None]
  - LOSS OF CONSCIOUSNESS [None]
  - SOMNOLENCE [None]
